FAERS Safety Report 21569948 (Version 1)
Quarter: 2022Q4

REPORT INFORMATION
  Report Type: Report from Study
  Country: US (occurrence: US)
  Receive Date: 20221109
  Receipt Date: 20221109
  Transmission Date: 20230113
  Serious: Yes (Hospitalization, Other)
  Sender: FDA-Public Use
  Company Number: US-SUN PHARMACEUTICAL INDUSTRIES LTD-2022R1-362137

PATIENT
  Sex: Male

DRUGS (1)
  1. CLOZAPINE [Suspect]
     Active Substance: CLOZAPINE
     Indication: Product used for unknown indication
     Dosage: 450MG AND IS ON 200MG TWICE A DAY
     Route: 065

REACTIONS (4)
  - Aggression [Unknown]
  - Clinically isolated syndrome [Unknown]
  - Psychotic disorder [Unknown]
  - Treatment noncompliance [Unknown]
